FAERS Safety Report 10239255 (Version 1)
Quarter: 2014Q2

REPORT INFORMATION
  Report Type: Spontaneous
  Country: US (occurrence: None)
  Receive Date: 20140613
  Receipt Date: 20140613
  Transmission Date: 20141212
  Serious: Yes (Life-Threatening, Hospitalization)
  Sender: FDA-Public Use
  Company Number: None

PATIENT
  Age: 61 Year
  Sex: Male
  Weight: 79.38 kg

DRUGS (5)
  1. LISINOPRIL [Suspect]
     Indication: BLOOD PRESSURE
     Route: 048
     Dates: start: 20131220, end: 20140116
  2. HYDROCHILOROT [Concomitant]
  3. AMLODIPINE [Concomitant]
  4. NIFEDOCAL [Concomitant]
  5. HYDROCHLOROT [Concomitant]

REACTIONS (2)
  - Swollen tongue [None]
  - Dyspnoea [None]
